FAERS Safety Report 17050065 (Version 2)
Quarter: 2019Q4

REPORT INFORMATION
  Report Type: Spontaneous
  Country: US (occurrence: US)
  Receive Date: 20191119
  Receipt Date: 20191211
  Transmission Date: 20200122
  Serious: Yes (Hospitalization)
  Sender: FDA-Public Use
  Company Number: US-TEVA-2019-US-1138601

PATIENT
  Age: 61 Year
  Sex: Male

DRUGS (1)
  1. LEVOFLOXACIN. [Suspect]
     Active Substance: LEVOFLOXACIN
     Indication: ANTIBIOTIC THERAPY
     Dosage: 750 MILLIGRAM DAILY; THE MAN WAS PRESCRIBED LEVOFLOXACIN 750MG EVERY OTHER DAY, BUT HE WAS TAKING IT
     Route: 065

REACTIONS (2)
  - Inappropriate schedule of product administration [Unknown]
  - Myoclonus [Recovered/Resolved]
